FAERS Safety Report 4811123-7 (Version None)
Quarter: 2005Q4

REPORT INFORMATION
  Report Type: 
  Country: None (occurrence: None)
  Receive Date: 20051027
  Receipt Date: 20051006
  Transmission Date: 20060501
  Serious: Yes (Death)
  Sender: FDA-Public Use
  Company Number: US-GLAXOSMITHKLINE-A0577248A

PATIENT
  Age: 41 Year
  Sex: Female

DRUGS (4)
  1. PAXIL [Suspect]
     Indication: DEPRESSION
     Dosage: 40MG PER DAY
     Route: 048
     Dates: start: 20020708
  2. NIASPAN [Concomitant]
  3. LORAZEPAM [Concomitant]
  4. LEVOTHROID [Concomitant]

REACTIONS (1)
  - COMPLETED SUICIDE [None]
